FAERS Safety Report 4803337-7 (Version None)
Quarter: 2005Q4

REPORT INFORMATION
  Report Type: 
  Country: None (occurrence: None)
  Receive Date: 20051019
  Receipt Date: 20050822
  Transmission Date: 20060501
  Serious: Yes (Other)
  Sender: FDA-Public Use
  Company Number: PHEH2005US09323

PATIENT
  Age: 46 Year
  Sex: Male
  Weight: 32 kg

DRUGS (2)
  1. TRILEPTAL [Suspect]
     Indication: AFFECT LABILITY
     Dosage: 300 MG, TID
     Route: 048
     Dates: start: 20050426, end: 20050526
  2. ZOCOR [Concomitant]

REACTIONS (4)
  - BLOOD GLUCOSE INCREASED [None]
  - DIABETES MELLITUS INSULIN-DEPENDENT [None]
  - THIRST [None]
  - URINE OUTPUT INCREASED [None]
